FAERS Safety Report 10103436 (Version 2)
Quarter: 2014Q2

REPORT INFORMATION
  Report Type: Other
  Country: US (occurrence: US)
  Receive Date: 20140424
  Receipt Date: 20140627
  Transmission Date: 20141212
  Serious: Yes (Hospitalization, Other)
  Sender: FDA-Public Use
  Company Number: US-GSKPPD-2014GSK000108

PATIENT
  Age: 46 Year
  Sex: Male

DRUGS (7)
  1. AVANDIA [Suspect]
     Indication: DIABETES MELLITUS
     Route: 048
     Dates: start: 20040607, end: 20070614
  2. AMLODIPINE BESYLATE [Concomitant]
     Route: 048
  3. CLOPIDOGREL BISULFATE [Concomitant]
     Route: 048
  4. ISOSORBIDE MONONITRATE [Concomitant]
     Route: 048
  5. LISINOPRIL [Concomitant]
     Route: 048
  6. NITROGLYCERIN [Concomitant]
     Route: 060
  7. ATENOLOL [Concomitant]
     Route: 048

REACTIONS (2)
  - Myocardial infarction [None]
  - Angina unstable [Recovered/Resolved]
